FAERS Safety Report 7362822 (Version 2)
Quarter: 2018Q4

REPORT INFORMATION
  Report Type: Spontaneous
  Country: US (occurrence: US)
  Receive Date: 20100422
  Receipt Date: 20181203
  Transmission Date: 20190205
  Serious: No
  Sender: FDA-Public Use
  Company Number: US-ASTRAZENECA-2009SE21298

PATIENT
  Sex: Female
  Weight: 83.9 kg

DRUGS (4)
  1. BYDUREON BCISE [Suspect]
     Active Substance: EXENATIDE
     Route: 065
  2. METOPROLOL SUCCINATE. [Suspect]
     Active Substance: METOPROLOL SUCCINATE
     Route: 048
  3. METOPROLOL SUCCINATE. [Suspect]
     Active Substance: METOPROLOL SUCCINATE
     Dosage: (PAR)
     Route: 048
  4. ACIPHEX [Concomitant]
     Active Substance: RABEPRAZOLE SODIUM

REACTIONS (8)
  - Gastrooesophageal reflux disease [Unknown]
  - Dizziness [Unknown]
  - Abdominal discomfort [Unknown]
  - Device malfunction [Unknown]
  - Dyspepsia [Unknown]
  - Asthenia [Unknown]
  - Gallbladder disorder [Unknown]
  - Nausea [Unknown]
